FAERS Safety Report 5508739-1 (Version None)
Quarter: 2007Q4

REPORT INFORMATION
  Report Type: 
  Country: None (occurrence: None)
  Receive Date: 20071031
  Receipt Date: 20070607
  Transmission Date: 20080405
  Serious: No
  Sender: FDA-Public Use
  Company Number: 2007PV032999

PATIENT
  Age: 72 Year
  Sex: Female

DRUGS (2)
  1. SYMLIN [Suspect]
     Indication: TYPE 1 DIABETES MELLITUS
     Dosage: 15 MCG;BID;SC ; 15 MCG;BID;SC
     Route: 058
     Dates: start: 20070523, end: 20070529
  2. SYMLIN [Suspect]
     Indication: TYPE 1 DIABETES MELLITUS
     Dosage: 15 MCG;BID;SC ; 15 MCG;BID;SC
     Route: 058
     Dates: start: 20070603, end: 20070603

REACTIONS (2)
  - DEHYDRATION [None]
  - DIARRHOEA [None]
